FAERS Safety Report 6793294-9 (Version None)
Quarter: 2010Q2

REPORT INFORMATION
  Report Type: 
  Country: None (occurrence: None)
  Receive Date: 20100624
  Receipt Date: 20091207
  Transmission Date: 20101027
  Serious: Yes (Other)
  Sender: FDA-Public Use
  Company Number: US-MYLANLABS-2009S1019093

PATIENT
  Age: 29 Year
  Sex: Male
  Weight: 108.86 kg

DRUGS (6)
  1. CLOZAPINE [Suspect]
     Indication: SCHIZOPHRENIA, PARANOID TYPE
     Route: 048
     Dates: start: 20091016, end: 20091102
  2. CELEXA [Concomitant]
  3. INVEGA /05724801/ [Concomitant]
  4. TOPIRAMATE [Concomitant]
     Route: 048
  5. CARBAMAZEPINE [Concomitant]
  6. SEROQUEL [Concomitant]
     Route: 048

REACTIONS (3)
  - GRANULOCYTOPENIA [None]
  - LEUKOPENIA [None]
  - PLATELET COUNT DECREASED [None]
